FAERS Safety Report 7638490-3 (Version None)
Quarter: 2011Q3

REPORT INFORMATION
  Report Type: 
  Country: None (occurrence: None)
  Receive Date: 20110727
  Receipt Date: 20110712
  Transmission Date: 20111222
  Serious: Yes (Other)
  Sender: FDA-Public Use
  Company Number: PHHY2011US62619

PATIENT
  Sex: Male

DRUGS (1)
  1. DIOVAN [Suspect]
     Dosage: UNK UKN, UNK
     Route: 065

REACTIONS (4)
  - ANGINA PECTORIS [None]
  - LOSS OF CONSCIOUSNESS [None]
  - PALPITATIONS [None]
  - CHEST DISCOMFORT [None]
